FAERS Safety Report 20840705 (Version 2)
Quarter: 2022Q4

REPORT INFORMATION
  Report Type: Spontaneous
  Country: HU (occurrence: HU)
  Receive Date: 20220517
  Receipt Date: 20221128
  Transmission Date: 20230112
  Serious: Yes (Hospitalization, Other)
  Sender: FDA-Public Use
  Company Number: HU-TEVA-2022-HU-2030179

PATIENT
  Age: 43 Year
  Sex: Female
  Weight: 68 kg

DRUGS (10)
  1. AZITHROMYCIN [Interacting]
     Active Substance: AZITHROMYCIN
     Indication: COVID-19
     Dosage: 500 MILLIGRAM, QD
     Route: 065
     Dates: start: 20211119, end: 20211121
  2. FAVIPIRAVIR [Interacting]
     Active Substance: FAVIPIRAVIR
     Indication: COVID-19
     Dosage: 2 X 1600MG FIRST,2 X 600MG DAILY FOR ANOTHER4 DAY
     Route: 065
  3. FAVIPIRAVIR [Interacting]
     Active Substance: FAVIPIRAVIR
     Dosage: 3200 MILLIGRAM, QD
     Route: 048
     Dates: start: 20211119, end: 20211119
  4. FAVIPIRAVIR [Interacting]
     Active Substance: FAVIPIRAVIR
     Dosage: 1200 MILLIGRAM, QD
     Route: 048
     Dates: start: 20211120, end: 20211123
  5. VITAMIN D3 [Suspect]
     Active Substance: CHOLECALCIFEROL
     Indication: COVID-19
     Dosage: 8000 INTERNATIONAL UNIT, QD
     Route: 065
  6. ENOXAPARIN [Suspect]
     Active Substance: ENOXAPARIN
     Indication: COVID-19
     Dosage: 0.6 MILLILITER, QD
     Route: 065
  7. COENZYME Q10 [Concomitant]
     Active Substance: DIETARY SUPPLEMENT\UBIDECARENONE
     Indication: COVID-19
     Dosage: 2000 MILLIGRAM
     Route: 065
     Dates: start: 20211119
  8. COENZYME Q10 [Concomitant]
     Active Substance: DIETARY SUPPLEMENT\UBIDECARENONE
     Indication: Supplementation therapy
  9. CHOLECALCIFEROL [Concomitant]
     Active Substance: CHOLECALCIFEROL
     Indication: Supplementation therapy
     Dosage: 8000 INTERNATIONAL UNIT
     Route: 065
     Dates: start: 20211119
  10. ENOXAPARIN [Concomitant]
     Active Substance: ENOXAPARIN
     Indication: COVID-19
     Dosage: 0.6 MILLILITER, QD
     Route: 058
     Dates: start: 20211119, end: 20211129

REACTIONS (4)
  - Sinus bradycardia [Recovered/Resolved]
  - Mitral valve incompetence [Recovered/Resolved]
  - Drug interaction [Unknown]
  - Off label use [Unknown]

NARRATIVE: CASE EVENT DATE: 20211123
